FAERS Safety Report 8066689-3 (Version None)
Quarter: 2012Q1

REPORT INFORMATION
  Report Type: 
  Country: None (occurrence: None)
  Receive Date: 20120124
  Receipt Date: 20120119
  Transmission Date: 20120608
  Serious: Yes (Other)
  Sender: FDA-Public Use
  Company Number: US-TEVA-318284USA

PATIENT
  Sex: Female
  Weight: 95.34 kg

DRUGS (7)
  1. FLUOXETINE HYDROCHLORIDE [Concomitant]
     Indication: CONVULSION
     Route: 048
  2. CLONAZEPAM [Concomitant]
     Indication: CONVULSION
     Dosage: 1.5 MILLIGRAM;
     Route: 048
  3. CARBAMAZEPINE [Concomitant]
     Indication: CONVULSION
     Dosage: 600 MILLIGRAM;
     Route: 048
  4. NUVIGIL [Suspect]
     Indication: ADVERSE DRUG REACTION
     Dosage: 250 MILLIGRAM; QAM
     Dates: start: 20120118, end: 20120118
  5. LAMOTRIGINE [Concomitant]
     Dosage: 50 MILLIGRAM;
     Route: 048
  6. NUVIGIL [Suspect]
     Indication: SLEEP APNOEA SYNDROME
     Dosage: 150 MILLIGRAM; QAM
     Dates: start: 20120111
  7. LAMOTRIGINE [Concomitant]
     Indication: CONVULSION
     Dosage: 200 MILLIGRAM;
     Route: 048

REACTIONS (4)
  - ENERGY INCREASED [None]
  - CONVULSION [None]
  - OFF LABEL USE [None]
  - DRUG EFFECT DECREASED [None]
